FAERS Safety Report 6230653-7 (Version None)
Quarter: 2009Q2

REPORT INFORMATION
  Report Type: 
  Country: None (occurrence: None)
  Receive Date: 20090611
  Receipt Date: 20090527
  Transmission Date: 20091009
  Serious: Yes (Hospitalization, Other)
  Sender: FDA-Public Use
  Company Number: 000915

PATIENT
  Sex: 0

DRUGS (1)
  1. VIMPAT [Suspect]
     Dosage: (150 MG QD)
     Dates: start: 20090108, end: 20090408

REACTIONS (1)
  - CEREBROVASCULAR ACCIDENT [None]
